FAERS Safety Report 7552904-9 (Version None)
Quarter: 2011Q2

REPORT INFORMATION
  Report Type: 
  Country: None (occurrence: None)
  Receive Date: 20110616
  Receipt Date: 20101129
  Transmission Date: 20111010
  Serious: No
  Sender: FDA-Public Use
  Company Number: US-ASTRAZENECA-2010SE56740

PATIENT
  Age: 965 Month
  Sex: Female
  Weight: 62.6 kg

DRUGS (2)
  1. SYNTHROID [Concomitant]
     Indication: THYROID DISORDER
  2. FASLODEX [Suspect]
     Indication: NEOPLASM MALIGNANT
     Route: 030
     Dates: start: 20101001

REACTIONS (6)
  - INJECTION SITE SWELLING [None]
  - GAIT DISTURBANCE [None]
  - INJECTION SITE PAIN [None]
  - PAIN IN EXTREMITY [None]
  - INJECTION SITE PRURITUS [None]
  - INJECTION SITE MASS [None]
